FAERS Safety Report 6488318-2 (Version None)
Quarter: 2009Q4

REPORT INFORMATION
  Report Type: 
  Country: None (occurrence: None)
  Receive Date: 20091210
  Receipt Date: 20091130
  Transmission Date: 20100525
  Serious: Yes (Other)
  Sender: FDA-Public Use
  Company Number: US-WYE-H12101409

PATIENT
  Sex: Female
  Weight: 68.1 kg

DRUGS (2)
  1. EFFEXOR [Suspect]
     Dosage: UNKNOWN
  2. LYRICA [Interacting]
     Indication: NEURALGIA
     Route: 048
     Dates: start: 20090901

REACTIONS (2)
  - DRUG INTERACTION [None]
  - FLATULENCE [None]
